FAERS Safety Report 5261061-3 (Version None)
Quarter: 2007Q1

REPORT INFORMATION
  Report Type: 
  Country: None (occurrence: None)
  Receive Date: 20070309
  Receipt Date: 20070228
  Transmission Date: 20070707
  Serious: Yes (Hospitalization, Disabling)
  Sender: FDA-Public Use
  Company Number: US-PFIZER INC-2005109936

PATIENT
  Sex: Female
  Weight: 43.1 kg

DRUGS (5)
  1. SU-011,248 [Suspect]
     Indication: NON-SMALL CELL LUNG CANCER
     Route: 048
     Dates: start: 20050711, end: 20050802
  2. TOPROL-XL [Concomitant]
     Route: 048
  3. MEGACE [Concomitant]
     Route: 048
  4. MS CONTIN [Concomitant]
     Route: 048
  5. MAGIC MOUTHWASH [Concomitant]
     Route: 048

REACTIONS (3)
  - CONFUSIONAL STATE [None]
  - NAUSEA [None]
  - VOMITING [None]
